FAERS Safety Report 4467643-0 (Version None)
Quarter: 2004Q4

REPORT INFORMATION
  Report Type: 
  Country: None (occurrence: None)
  Receive Date: 20041004
  Receipt Date: 20041004
  Transmission Date: 20050328
  Serious: No
  Sender: FDA-Public Use
  Company Number: None

PATIENT
  Age: 69 Year
  Sex: Female
  Weight: 68.0396 kg

DRUGS (3)
  1. GLUCOVANCE [Suspect]
     Indication: DIABETES MELLITUS
     Dosage: ONE TAB BID
     Dates: start: 20040412, end: 20040525
  2. WARFARIN SODIUM [Concomitant]
  3. LOVENOX [Concomitant]

REACTIONS (3)
  - DIABETES MELLITUS INADEQUATE CONTROL [None]
  - DRUG INEFFECTIVE [None]
  - PHARMACEUTICAL PRODUCT COMPLAINT [None]
